FAERS Safety Report 10076435 (Version 1)
Quarter: 2014Q2

REPORT INFORMATION
  Report Type: Spontaneous
  Country: TR (occurrence: TR)
  Receive Date: 20140414
  Receipt Date: 20140414
  Transmission Date: 20141212
  Serious: Yes (Hospitalization)
  Sender: FDA-Public Use
  Company Number: TR-MALLINCKRODT-T201401829

PATIENT
  Age: 77 Year
  Sex: Male
  Weight: 60 kg

DRUGS (1)
  1. OPTIRAY [Suspect]
     Indication: ANGIOGRAM
     Dosage: 300 ML, UNK
     Route: 013
     Dates: start: 20140226, end: 20140226

REACTIONS (2)
  - Nausea [Recovered/Resolved]
  - Tremor [Recovered/Resolved]
